FAERS Safety Report 5905058-6 (Version None)
Quarter: 2008Q4

REPORT INFORMATION
  Report Type: 
  Country: None (occurrence: None)
  Receive Date: 20081001
  Receipt Date: 20080929
  Transmission Date: 20090506
  Serious: Yes (Hospitalization)
  Sender: FDA-Public Use
  Company Number: DE-WYE-G02250708

PATIENT
  Sex: Female
  Weight: 70 kg

DRUGS (8)
  1. LORAZEPAM [Suspect]
     Dosage: UNKNOWN OVERDOSE AMOUNT
     Route: 048
     Dates: start: 20080927, end: 20080927
  2. AMITRIPTYLINE HCL [Suspect]
     Dosage: MAX. 10 TABLETS (OVERDOSE AMOUNT MAX. 1000 MG)
     Route: 048
     Dates: start: 20080927, end: 20080927
  3. SIMVASTATIN [Suspect]
     Dosage: MAX. 10 TABLETS (OVERDOSE AMOUNT MAX. 200 MG)
     Route: 048
     Dates: start: 20080927, end: 20080927
  4. METOPROLOL TARTRATE [Suspect]
     Dosage: MAX. 30 TABLETS (OVERDOSE AMOUNT MAX. 3000 MG)
     Route: 048
     Dates: start: 20080927, end: 20080927
  5. RAMIPRIL [Suspect]
     Dosage: MAX. 68 TABLETS (OVERDOSE AMOUNT MAX. 680 MG)
     Route: 048
     Dates: start: 20080927, end: 20080927
  6. SEROQUEL [Suspect]
     Dosage: MAX. 10 TABLETS (OVERDOSE AMOUNT MAX. 1000 MG)
     Route: 048
     Dates: start: 20080927, end: 20080927
  7. TREVILOR [Suspect]
     Dosage: UNKNOWN OVERDOSE AMOUNT
     Route: 048
     Dates: start: 20080927, end: 20080927
  8. MELATONIN [Suspect]
     Dosage: OVERDOSE AMOUNT MAX. 21 TABLETS
     Route: 048
     Dates: start: 20080927, end: 20080927

REACTIONS (5)
  - ACIDOSIS [None]
  - HYPOTENSION [None]
  - INTENTIONAL OVERDOSE [None]
  - SOPOR [None]
  - SUICIDE ATTEMPT [None]
